FAERS Safety Report 15038523 (Version 2)
Quarter: 2019Q2

REPORT INFORMATION
  Report Type: Report from Study
  Country: BE (occurrence: BE)
  Receive Date: 20180620
  Receipt Date: 20190603
  Transmission Date: 20190711
  Serious: Yes (Hospitalization)
  Sender: FDA-Public Use
  Company Number: PHHY2018BE000700

PATIENT
  Age: 68 Year
  Sex: Male
  Weight: 86 kg

DRUGS (4)
  1. ENTRESTO [Suspect]
     Active Substance: SACUBITRIL\VALSARTAN
     Dosage: 1 DF (24 MG SACUBITRIL, 26 MG VALSARTAN), BID
     Route: 048
     Dates: start: 20170913, end: 20180122
  2. ENTRESTO [Suspect]
     Active Substance: SACUBITRIL\VALSARTAN
     Dosage: 1 DF (24 MG SACUBITRIL, 26 MG VALSARTAN), BID
     Route: 048
     Dates: start: 20180216, end: 20180302
  3. ENTRESTO [Suspect]
     Active Substance: SACUBITRIL\VALSARTAN
     Dosage: 1 DF (49 MG SACUBITRIL, 51 MG VALSARTAN), BID
     Route: 048
     Dates: start: 20170729, end: 20170912
  4. ENTRESTO [Suspect]
     Active Substance: SACUBITRIL\VALSARTAN
     Indication: CARDIAC FAILURE CHRONIC
     Dosage: 1 DF (24 MG SACUBITRIL, 26 MG VALSARTAN), BID
     Route: 048
     Dates: start: 20170626, end: 20170728

REACTIONS (4)
  - Cough [Recovering/Resolving]
  - Bronchitis [Recovering/Resolving]
  - Fatigue [Recovering/Resolving]
  - Dyspnoea [Recovering/Resolving]

NARRATIVE: CASE EVENT DATE: 20170901
